FAERS Safety Report 8625058-5 (Version None)
Quarter: 2012Q3

REPORT INFORMATION
  Report Type: 
  Country: None (occurrence: None)
  Receive Date: 20120827
  Receipt Date: 20120822
  Transmission Date: 20120928
  Serious: Yes (Other)
  Sender: FDA-Public Use
  Company Number: US-PFIZER INC-2012206515

PATIENT
  Age: 55 Year
  Sex: Female
  Weight: 72.562 kg

DRUGS (4)
  1. LYRICA [Suspect]
     Indication: NEURALGIA
     Dosage: 300 MG, 1X/DAY
     Route: 048
     Dates: start: 20100201
  2. LYRICA [Suspect]
     Indication: SPINAL DISORDER
  3. LYRICA [Suspect]
     Indication: MULTIPLE SCLEROSIS
  4. LIPITOR [Concomitant]
     Indication: BLOOD CHOLESTEROL INCREASED
     Dosage: 20 MG, 1X/DAY

REACTIONS (4)
  - SPINAL DISORDER [None]
  - PAIN IN EXTREMITY [None]
  - SLEEP DISORDER [None]
  - WEIGHT INCREASED [None]
